FAERS Safety Report 14067289 (Version 4)
Quarter: 2018Q3

REPORT INFORMATION
  Report Type: Spontaneous
  Country: US (occurrence: US)
  Receive Date: 20171009
  Receipt Date: 20180907
  Transmission Date: 20181010
  Serious: Yes (Life-Threatening, Hospitalization)
  Sender: FDA-Public Use
  Company Number: US-ACTELION-A-US2017-160566

PATIENT
  Age: 67 Year
  Sex: Male

DRUGS (25)
  1. SOTALOL HCL [Concomitant]
     Active Substance: SOTALOL
  2. LIDODERM [Concomitant]
     Active Substance: LIDOCAINE
  3. RIOCIGUAT. [Suspect]
     Active Substance: RIOCIGUAT
     Indication: PRODUCT USED FOR UNKNOWN INDICATION
     Dosage: 2.50 MG, TID
     Route: 065
  4. RIOCIGUAT. [Suspect]
     Active Substance: RIOCIGUAT
     Dosage: 0.50 MG, TID (COMBINED WITH 1/2 TAB OF 2.5 MG FOR A TOTAL OF 1.75 MG PER DOSE TID)
     Route: 048
     Dates: start: 20170524
  5. DIGOXIN. [Concomitant]
     Active Substance: DIGOXIN
  6. COMPAZINE [Concomitant]
     Active Substance: PROCHLORPERAZINE MALEATE
     Dosage: 8 MG, PRN (EVERY 4?6 HOURS)
     Route: 048
  7. TRACLEER [Suspect]
     Active Substance: BOSENTAN
     Dosage: 125 MG, TID
     Route: 048
  8. DILTIAZEM. [Concomitant]
     Active Substance: DILTIAZEM
  9. ZOCOR [Concomitant]
     Active Substance: SIMVASTATIN
     Dosage: 20 MG, QPM
     Route: 048
  10. TRACLEER [Suspect]
     Active Substance: BOSENTAN
     Indication: PULMONARY HYPERTENSION
     Dosage: 125 MG, BID
     Route: 048
     Dates: start: 20120831
  11. BETAPACE [Concomitant]
     Active Substance: SOTALOL HYDROCHLORIDE
     Dosage: 20 MG, QD
     Route: 048
  12. DEMADEX [Concomitant]
     Active Substance: TORSEMIDE
     Dosage: 40 MG, QD
     Route: 048
  13. ZOFRAN [Concomitant]
     Active Substance: ONDANSETRON HYDROCHLORIDE
     Dosage: 8 MG, TID (EVERY 8 HOURS)
     Route: 048
  14. REVLIMID [Suspect]
     Active Substance: LENALIDOMIDE
     Indication: PLASMA CELL MYELOMA
     Dosage: 10 MG, QD (FOR 2 WEEKS, THEN STOP FOR 1 WEEK)
     Route: 065
     Dates: start: 20180214
  15. VELCADE [Suspect]
     Active Substance: BORTEZOMIB
     Indication: PLASMA CELL MYELOMA
     Route: 065
  16. COUMADIN [Concomitant]
     Active Substance: WARFARIN SODIUM
  17. SYNTHROID [Concomitant]
     Active Substance: LEVOTHYROXINE SODIUM
     Dosage: 224 MCG, QD (SUN AND WED)
  18. TORSEMIDE. [Concomitant]
     Active Substance: TORSEMIDE
  19. SPIRONOLACTONE. [Concomitant]
     Active Substance: SPIRONOLACTONE
  20. ZOVIRAX [Concomitant]
     Active Substance: ACYCLOVIR
     Dosage: 400 MG, BID
     Route: 048
  21. XARELTO [Suspect]
     Active Substance: RIVAROXABAN
     Indication: PRODUCT USED FOR UNKNOWN INDICATION
     Dosage: 15 MG, QPM
     Route: 048
  22. SAW PALMETTO [Concomitant]
     Active Substance: HERBALS\SAW PALMETTO
  23. METOPROLOL EG [Concomitant]
  24. ZYLOPRIM [Concomitant]
     Active Substance: ALLOPURINOL
     Dosage: 300 MG, QD
     Route: 048
  25. DECADRON [Concomitant]
     Active Substance: DEXAMETHASONE
     Dosage: 40 MG, Q1WEEK (THURSDAY)
     Route: 048

REACTIONS (34)
  - Hodgkin^s disease [Unknown]
  - Cardiac failure [Unknown]
  - Oxygen consumption increased [Not Recovered/Not Resolved]
  - Diet noncompliance [Recovering/Resolving]
  - Pruritus [Unknown]
  - Acute kidney injury [Recovered/Resolved]
  - Oliguria [Recovered/Resolved]
  - Head injury [Recovered/Resolved]
  - Dizziness [Unknown]
  - Treatment noncompliance [Recovering/Resolving]
  - Hypotension [Recovered/Resolved]
  - Staphylococcal infection [Unknown]
  - Clostridium difficile infection [Unknown]
  - Nausea [Unknown]
  - Streptococcal sepsis [Recovered/Resolved]
  - Septic shock [Recovered/Resolved]
  - Asthenia [Recovered/Resolved]
  - Hypokalaemia [Unknown]
  - Syncope [Recovered/Resolved]
  - Hypothyroidism [Unknown]
  - Fluid retention [Not Recovered/Not Resolved]
  - Right ventricular failure [Recovering/Resolving]
  - Dyspnoea [Not Recovered/Not Resolved]
  - Epistaxis [Unknown]
  - Skin fragility [Unknown]
  - Haemorrhage [Recovered/Resolved]
  - Normocytic anaemia [Unknown]
  - Weight increased [Unknown]
  - Decreased appetite [Unknown]
  - Orthostatic hypotension [Unknown]
  - Atrial flutter [Recovered/Resolved]
  - Cardiac output decreased [Unknown]
  - Malaise [Unknown]
  - Increased tendency to bruise [Unknown]

NARRATIVE: CASE EVENT DATE: 20160715
